FAERS Safety Report 4485336-0 (Version None)
Quarter: 2004Q3

REPORT INFORMATION
  Report Type: 
  Country: None (occurrence: None)
  Receive Date: 20040921
  Receipt Date: 20040422
  Transmission Date: 20050211
  Serious: Yes (Hospitalization)
  Sender: FDA-Public Use
  Company Number: 163-20785-04040522

PATIENT
  Age: 66 Year
  Sex: Female
  Weight: 69.9 kg

DRUGS (8)
  1. THALOMID [Suspect]
     Indication: METASTASES TO CENTRAL NERVOUS SYSTEM
     Dosage: 400 MG, AT BEDTIME, ORAL
     Route: 048
     Dates: start: 20040316, end: 20040406
  2. RADIOTHERAPY (UNKNOWN) [Suspect]
     Indication: METASTASES TO CENTRAL NERVOUS SYSTEM
     Dosage: 70 GY, DAILY,
     Dates: start: 20040101, end: 20040301
  3. ALEVE [Concomitant]
  4. CELEBREX [Concomitant]
  5. COMBIVENT INHALER (COMBIVENT) (UNKNOWN) [Concomitant]
  6. DEXAMETHASONE [Concomitant]
  7. MULTIVITAMIN (MULTIVITAMIN) [Concomitant]
  8. TYLENOL (PARACETAMOL) (UNKNOWN) [Concomitant]

REACTIONS (1)
  - RADIATION PNEUMONITIS [None]
